FAERS Safety Report 8525467-9 (Version None)
Quarter: 2012Q3

REPORT INFORMATION
  Report Type: 
  Country: None (occurrence: None)
  Receive Date: 20120720
  Receipt Date: 20120710
  Transmission Date: 20120928
  Serious: Yes (Other)
  Sender: FDA-Public Use
  Company Number: JP-VERTEX PHARMACEUTICALS INC.-AE-2012-002821

PATIENT
  Age: 56 Year
  Sex: Female

DRUGS (12)
  1. REBETOL [Concomitant]
     Route: 048
     Dates: start: 20120418, end: 20120626
  2. LOXONIN [Concomitant]
     Route: 048
     Dates: start: 20120417, end: 20120423
  3. METHADERM [Concomitant]
     Route: 062
     Dates: start: 20120612, end: 20120626
  4. REBETOL [Concomitant]
     Indication: HEPATITIS C
     Route: 048
     Dates: start: 20120110, end: 20120123
  5. ASPIRIN [Concomitant]
     Route: 048
     Dates: start: 20120417, end: 20120423
  6. CLARITIN [Concomitant]
     Route: 048
     Dates: start: 20120214, end: 20120612
  7. REBETOL [Concomitant]
     Route: 048
     Dates: start: 20120124, end: 20120417
  8. TELAVIC (TELAPREVIR) [Suspect]
     Indication: HEPATITIS C
     Route: 048
     Dates: start: 20120110, end: 20120403
  9. PEGINTERFERON ALFA-2B [Concomitant]
     Indication: HEPATITIS C
     Route: 058
     Dates: start: 20120110, end: 20120619
  10. PAROTIN [Concomitant]
     Route: 048
  11. NEUROTROPIN [Concomitant]
     Route: 048
  12. BONALFA [Concomitant]
     Route: 062
     Dates: start: 20120612, end: 20120626

REACTIONS (4)
  - NEUTROPHIL COUNT DECREASED [None]
  - INSOMNIA [None]
  - DEPRESSION [None]
  - HAEMOGLOBIN DECREASED [None]
